FAERS Safety Report 5534675-0 (Version None)
Quarter: 2007Q4

REPORT INFORMATION
  Report Type: 
  Country: None (occurrence: None)
  Receive Date: 20071130
  Receipt Date: 20071116
  Transmission Date: 20080405
  Serious: Yes (Hospitalization)
  Sender: FDA-Public Use
  Company Number: POMP-11273

PATIENT
  Age: 13 Month
  Sex: Male

DRUGS (9)
  1. MYOZYME [Suspect]
     Indication: GLYCOGEN STORAGE DISEASE TYPE II
     Dosage: 40 MG/KG Q2WKS IV
     Dates: start: 20070801
  2. MYOZYME [Suspect]
  3. MYOZYME [Suspect]
     Indication: GLYCOGEN STORAGE DISEASE TYPE II
     Dosage: 30 MG/KG Q2WKS IV
     Route: 042
     Dates: start: 20070509, end: 20070701
  4. MYOZYME [Suspect]
     Indication: GLYCOGEN STORAGE DISEASE TYPE II
     Dosage: 20 MG/KG Q2WKS IV
     Route: 042
     Dates: start: 20060911, end: 20070401
  5. RITUXIMAB [Concomitant]
  6. METHOTREXATE [Concomitant]
  7. IMMUNE GLOBULIN INTRAVENOUS (HUMAN) [Concomitant]
  8. BENADRYL [Concomitant]
  9. TYLENOL (CAPLET) [Concomitant]

REACTIONS (8)
  - ASPIRATION [None]
  - CATHETER RELATED INFECTION [None]
  - CLEFT PALATE [None]
  - DISEASE PROGRESSION [None]
  - DISEASE RECURRENCE [None]
  - DYSPHAGIA [None]
  - NYSTAGMUS [None]
  - RESPIRATORY FAILURE [None]
